FAERS Safety Report 12465139 (Version 2)
Quarter: 2018Q4

REPORT INFORMATION
  Report Type: Spontaneous
  Country: FR (occurrence: FR)
  Receive Date: 20160614
  Receipt Date: 20181011
  Transmission Date: 20190204
  Serious: Yes (Death, Hospitalization, Other)
  Sender: FDA-Public Use
  Company Number: FR-BAXTER-2016BAX030396

PATIENT
  Age: 58 Year
  Sex: Male
  Weight: 84 kg

DRUGS (23)
  1. CARMUSTINE. [Suspect]
     Active Substance: CARMUSTINE
     Dosage: PROTOCOL BESANCON COURSE 2
     Route: 065
     Dates: start: 20141201, end: 20141205
  2. LEVACT [Suspect]
     Active Substance: BENDAMUSTINE HYDROCHLORIDE
     Indication: PLASMA CELL MYELOMA RECURRENT
     Dosage: POWDER FOR CONCENTRATE FOR SOLUTION
     Route: 042
     Dates: end: 20150413
  3. CELLTOP 100 MG/5 ML, SOLUTION INJECTABLE POUR PERFUSION [Suspect]
     Active Substance: ETOPOSIDE
     Dosage: PROTOCOL BESANCON COURSE 5, DECREASE IN THE DOSES
     Route: 065
     Dates: start: 201502
  4. ENDOXAN 50 MG, COMPRIM? ENROB? [Suspect]
     Active Substance: CYCLOPHOSPHAMIDE
     Indication: PLASMA CELL MYELOMA RECURRENT
     Dosage: COURSE 7, FROM D2 TO D8 AND SAME FOR COURSE 8 AND FROM COURSE 9 TO COURSE 16
     Route: 048
     Dates: start: 20131008
  5. ENDOXAN 50 MG, COMPRIM? ENROB? [Suspect]
     Active Substance: CYCLOPHOSPHAMIDE
     Dosage: PROTOCOL BESANCON, COURSE 3
     Route: 048
     Dates: start: 20141229, end: 20150105
  6. REVLIMID [Suspect]
     Active Substance: LENALIDOMIDE
     Indication: PLASMA CELL MYELOMA
     Route: 065
     Dates: start: 2013
  7. CARMUSTINE. [Suspect]
     Active Substance: CARMUSTINE
     Dosage: PROTOCOL BESANCON COURSE 3
     Route: 065
     Dates: start: 20141229, end: 20150105
  8. ENDOXAN 50 MG, COMPRIM? ENROB? [Suspect]
     Active Substance: CYCLOPHOSPHAMIDE
     Dosage: PROTOCOL BESANCON, COURSE 5 WITH DECREASE IN DOSE
     Route: 048
     Dates: start: 201502
  9. CELLTOP 100 MG/5 ML, SOLUTION INJECTABLE POUR PERFUSION [Suspect]
     Active Substance: ETOPOSIDE
     Indication: PLASMA CELL MYELOMA RECURRENT
     Dosage: PROTOCOL BESANCON, COURSE 1
     Route: 065
     Dates: start: 20141022
  10. CELLTOP 100 MG/5 ML, SOLUTION INJECTABLE POUR PERFUSION [Suspect]
     Active Substance: ETOPOSIDE
     Dosage: PROTOCOL BESANCON COURSE 2
     Route: 065
     Dates: start: 20141201, end: 20141205
  11. CELLTOP 100 MG/5 ML, SOLUTION INJECTABLE POUR PERFUSION [Suspect]
     Active Substance: ETOPOSIDE
     Dosage: PROTOCOL BESANCON COURSE 3
     Route: 065
     Dates: start: 20141229, end: 20150105
  12. CELLTOP 100 MG/5 ML, SOLUTION INJECTABLE POUR PERFUSION [Suspect]
     Active Substance: ETOPOSIDE
     Dosage: PROTOCOL BESANCON COURSE 4
     Route: 065
     Dates: start: 20150119, end: 20150123
  13. DEXAMETHASONE. [Suspect]
     Active Substance: DEXAMETHASONE
     Indication: PLASMA CELL MYELOMA
     Route: 065
     Dates: start: 2013
  14. CARMUSTINE. [Suspect]
     Active Substance: CARMUSTINE
     Indication: PLASMA CELL MYELOMA RECURRENT
     Dosage: PROTOCOL BESANCON COURSE 1
     Route: 065
     Dates: start: 20141022
  15. ENDOXAN 50 MG, COMPRIM? ENROB? [Suspect]
     Active Substance: CYCLOPHOSPHAMIDE
     Dosage: PROTOCOL BESANCON
     Route: 048
     Dates: start: 20141022
  16. CARMUSTINE. [Suspect]
     Active Substance: CARMUSTINE
     Dosage: PROTOCOL BESANCON COURSE 4
     Route: 065
     Dates: start: 20150119, end: 20150123
  17. ENDOXAN 50 MG, COMPRIM? ENROB? [Suspect]
     Active Substance: CYCLOPHOSPHAMIDE
     Dosage: PROTOCOL BESANCON, COURSE 6
     Route: 048
     Dates: start: 201503, end: 20150325
  18. CELLTOP 100 MG/5 ML, SOLUTION INJECTABLE POUR PERFUSION [Suspect]
     Active Substance: ETOPOSIDE
     Dosage: PROTOCOL BESANCON COURSE 6
     Route: 065
     Dates: start: 201503, end: 20150325
  19. CARMUSTINE. [Suspect]
     Active Substance: CARMUSTINE
     Dosage: PROTOCOL BESANCON COURSE 6
     Route: 065
     Dates: start: 201503, end: 20150325
  20. MELPHALAN. [Suspect]
     Active Substance: MELPHALAN
     Indication: PLASMA CELL MYELOMA RECURRENT
     Dosage: 180/M2
     Route: 065
  21. ENDOXAN 50 MG, COMPRIM? ENROB? [Suspect]
     Active Substance: CYCLOPHOSPHAMIDE
     Dosage: PROTOCOL BESANCON, COURSE 2
     Route: 048
     Dates: start: 20141201, end: 20141205
  22. ENDOXAN 50 MG, COMPRIM? ENROB? [Suspect]
     Active Substance: CYCLOPHOSPHAMIDE
     Dosage: PROTOCOL BESANCON, COURSE 4
     Route: 048
     Dates: start: 20150119, end: 20150123
  23. CARMUSTINE. [Suspect]
     Active Substance: CARMUSTINE
     Dosage: PROTOCOL BESANCON COURSE 5 WITH DECREASE IN DOSE
     Route: 065
     Dates: start: 201502

REACTIONS (8)
  - Atrial fibrillation [Unknown]
  - Lung disorder [Unknown]
  - Septic shock [Unknown]
  - Non-obstructive cardiomyopathy [Recovering/Resolving]
  - Plasma cell myeloma recurrent [Unknown]
  - Therapy partial responder [Unknown]
  - General physical health deterioration [Unknown]
  - Staphylococcus test positive [Unknown]

NARRATIVE: CASE EVENT DATE: 2013
